FAERS Safety Report 6544708-0 (Version None)
Quarter: 2010Q1

REPORT INFORMATION
  Report Type: 
  Country: None (occurrence: None)
  Receive Date: 20100121
  Receipt Date: 20100118
  Transmission Date: 20100710
  Serious: Yes (Death)
  Sender: FDA-Public Use
  Company Number: PHHY2010DE02668

PATIENT
  Sex: Male
  Weight: 110 kg

DRUGS (5)
  1. ALISKIREN ALI+ [Suspect]
     Indication: HYPERTENSION
     Dosage: UNK
     Dates: start: 20090220
  2. ENALAPRIL MALEATE [Concomitant]
     Indication: HYPERTENSION
     Dosage: 10 MG/DAY
     Dates: start: 20090222
  3. CALCIUM CHANNEL BLOCKERS [Concomitant]
  4. DIURETICS [Concomitant]
  5. NSAR [Concomitant]

REACTIONS (1)
  - CARDIAC DEATH [None]
